FAERS Safety Report 9724931 (Version 1)
Quarter: 2013Q4

REPORT INFORMATION
  Report Type: Spontaneous
  Country: US (occurrence: US)
  Receive Date: 20131202
  Receipt Date: 20131202
  Transmission Date: 20140711
  Serious: Yes (Other)
  Sender: FDA-Public Use
  Company Number: US-SA-2013SA123334

PATIENT
  Age: 76 Year
  Sex: Male
  Weight: 90.71 kg

DRUGS (2)
  1. PLAVIX [Suspect]
     Route: 065
  2. ASPIRIN [Suspect]
     Route: 065

REACTIONS (5)
  - International normalised ratio increased [Unknown]
  - Weight increased [Unknown]
  - Angina pectoris [Unknown]
  - Dizziness [Unknown]
  - Dizziness [Unknown]
